FAERS Safety Report 6331806-X (Version None)
Quarter: 2009Q3

REPORT INFORMATION
  Report Type: 
  Country: None (occurrence: None)
  Receive Date: 20090826
  Receipt Date: 20090819
  Transmission Date: 20100115
  Serious: Yes (Life-Threatening, Hospitalization)
  Sender: FDA-Public Use
  Company Number: 2009JP005109

PATIENT
  Age: 29 Year
  Sex: Male

DRUGS (3)
  1. TACROLIMUS [Suspect]
     Indication: RENAL TRANSPLANT
  2. PREDNISOLONE [Suspect]
     Indication: RENAL TRANSPLANT
  3. MYCOPHENOLATE MOFETIL [Suspect]
     Indication: RENAL TRANSPLANT

REACTIONS (5)
  - ASPERGILLOSIS [None]
  - CULTURE POSITIVE [None]
  - URINE OUTPUT DECREASED [None]
  - VASCULAR GRAFT COMPLICATION [None]
  - VASCULAR PSEUDOANEURYSM [None]
